FAERS Safety Report 14339345 (Version 18)
Quarter: 2022Q4

REPORT INFORMATION
  Report Type: Spontaneous
  Country: GB (occurrence: GB)
  Receive Date: 20171230
  Receipt Date: 20221228
  Transmission Date: 20230113
  Serious: Yes (Death, Life-Threatening, Hospitalization, Disabling, Other)
  Sender: FDA-Public Use
  Company Number: GB-MHRA-EYC 00170316

PATIENT
  Age: 76 Year
  Sex: Male
  Weight: 69 kg

DRUGS (74)
  1. BISOPROLOL [Suspect]
     Active Substance: BISOPROLOL
     Indication: Product used for unknown indication
     Dosage: UNK
     Route: 065
  2. CLARITHROMYCIN [Suspect]
     Active Substance: CLARITHROMYCIN
     Indication: Product used for unknown indication
     Dosage: 9000 MILLIGRAM
     Route: 065
  3. CLARITHROMYCIN [Suspect]
     Active Substance: CLARITHROMYCIN
     Dosage: 250 MILLIGRAM DAILY; 500 MILLIGRAM, QOD
     Route: 065
     Dates: start: 20180127, end: 20180131
  4. CLARITHROMYCIN [Suspect]
     Active Substance: CLARITHROMYCIN
     Dosage: 500 MILLIGRAM, ONCE A DAY
     Route: 042
  5. CLARITHROMYCIN [Suspect]
     Active Substance: CLARITHROMYCIN
     Dosage: 1000 MILLIGRAM, ONCE A DAY, 500 MG, BID
     Route: 042
     Dates: start: 20180127, end: 20180130
  6. CLARITHROMYCIN [Suspect]
     Active Substance: CLARITHROMYCIN
     Dosage: 1000 MILLIGRAM, ONCE A DAY
     Route: 042
     Dates: start: 20180131
  7. TACROLIMUS [Suspect]
     Active Substance: TACROLIMUS
     Indication: Prophylaxis against transplant rejection
     Dosage: 27 MILLIGRAM
     Route: 065
  8. TACROLIMUS [Suspect]
     Active Substance: TACROLIMUS
     Indication: Renal transplant
     Dosage: 2 MILLIGRAM, ONCE A DAY
     Route: 048
  9. TACROLIMUS [Suspect]
     Active Substance: TACROLIMUS
     Dosage: 3 MILLIGRAM, ONCE A DAY(1.5 MG, BID )
     Route: 048
     Dates: start: 20180127, end: 20180130
  10. TACROLIMUS [Suspect]
     Active Substance: TACROLIMUS
     Dosage: 30 MILLIGRAM, ONCE A DAY(15 MG, BID )
     Route: 048
     Dates: start: 20180127
  11. TACROLIMUS [Suspect]
     Active Substance: TACROLIMUS
     Dosage: 1.5 MILLIGRAM, ONCE A DAY
     Route: 048
     Dates: start: 20180127
  12. TACROLIMUS [Suspect]
     Active Substance: TACROLIMUS
     Dosage: 4 MILLIGRAM, ONCE A DAY (4 MILLIGRAM DAILY;)
     Route: 048
     Dates: start: 20180128, end: 20180130
  13. TACROLIMUS [Suspect]
     Active Substance: TACROLIMUS
     Dosage: 4 MILLIGRAM, ONCE A DAY(2 MG, BID )
     Route: 048
     Dates: start: 20180130
  14. TACROLIMUS [Suspect]
     Active Substance: TACROLIMUS
     Dosage: 3 MILLIGRAM, ONCE A DAY (3 MILLIGRAM DAILY;)
     Route: 048
     Dates: start: 20100127, end: 20180130
  15. TACROLIMUS [Suspect]
     Active Substance: TACROLIMUS
     Dosage: 15 MILLIGRAM, TWO TIMES A DAY (15 MG, BID)
     Route: 065
  16. TACROLIMUS [Suspect]
     Active Substance: TACROLIMUS
     Dosage: 8769 MILLIGRAM
     Route: 065
  17. TACROLIMUS [Suspect]
     Active Substance: TACROLIMUS
     Dosage: 2 MILLIGRAM ()2 MILLIGRAM DAILY;
     Route: 048
  18. TACROLIMUS [Suspect]
     Active Substance: TACROLIMUS
     Dosage: 3 MILLIGRAM, TWO TIMES A DAY (3 MILLIGRAM DAILY;)
     Route: 065
     Dates: start: 20100128, end: 20180130
  19. ALFACALCIDOL [Suspect]
     Active Substance: ALFACALCIDOL
     Indication: Product used for unknown indication
     Dosage: 500 MILLIGRAM, ONCE A DAY(ALFACALCIDOL 500NG OD PO O/A )
     Route: 048
  20. ALFACALCIDOL [Suspect]
     Active Substance: ALFACALCIDOL
     Dosage: 500 NANOGRAM, ONCE A DAY
     Route: 048
  21. CEFUROXIME [Suspect]
     Active Substance: CEFUROXIME
     Indication: Product used for unknown indication
     Dosage: UNK (PHARMACEUTICAL DOSE FORM: FORMULATION UNKNOWN)
     Route: 065
     Dates: start: 20180131
  22. DIGOXIN [Suspect]
     Active Substance: DIGOXIN
     Indication: Product used for unknown indication
     Dosage: UNK
     Route: 065
  23. DOXYCYCLINE [Suspect]
     Active Substance: DOXYCYCLINE
     Indication: Product used for unknown indication
     Dosage: 1 DOSAGE FORM (PHARMACEUTICAL DOSE FORM: FORMULATION UNKNOWN)
     Route: 065
  24. ENVARSUS XR [Suspect]
     Active Substance: TACROLIMUS
     Indication: Prophylaxis against transplant rejection
     Dosage: 27 MILLIGRAM 5 DAYS
     Route: 065
  25. ENVARSUS XR [Suspect]
     Active Substance: TACROLIMUS
     Indication: Renal transplant
     Dosage: 3 MILLIGRAM, ONCE A DAY
     Route: 065
     Dates: start: 20180127
  26. ENVARSUS XR [Suspect]
     Active Substance: TACROLIMUS
     Dosage: 27 MILLIGRAM
     Route: 065
  27. EPLERENONE [Suspect]
     Active Substance: EPLERENONE
     Indication: Product used for unknown indication
     Dosage: 25 MILLIGRAM, ONCE A DAY (MORNING)
     Route: 048
     Dates: start: 20180130
  28. EPLERENONE [Suspect]
     Active Substance: EPLERENONE
     Dosage: 25 MILLIGRAM, ONE MONTH
     Route: 048
     Dates: start: 20180130
  29. NITROGLYCERIN [Suspect]
     Active Substance: NITROGLYCERIN
     Indication: Product used for unknown indication
     Dosage: UNK
     Route: 065
  30. NITROGLYCERIN [Interacting]
     Active Substance: NITROGLYCERIN
     Indication: Product used for unknown indication
     Dosage: UNK
     Route: 065
  31. DEXTROSE [Suspect]
     Active Substance: DEXTROSE
     Indication: Product used for unknown indication
     Dosage: UNK
     Route: 065
  32. DEXTROSE [Suspect]
     Active Substance: DEXTROSE
     Dosage: UNK
     Route: 065
     Dates: start: 20180130
  33. HYDROCORTISONE [Suspect]
     Active Substance: HYDROCORTISONE
     Indication: Product used for unknown indication
     Dosage: 150 MILLIGRAM, ONCE A DAY
     Route: 042
  34. HYDROCORTISONE [Suspect]
     Active Substance: HYDROCORTISONE
     Dosage: 50 MILLIGRAM, 3 TIMES A DAY (150 MILLIGRAM DAILY;)
     Route: 042
     Dates: start: 20180201
  35. HYDROCORTISONE [Suspect]
     Active Substance: HYDROCORTISONE
     Dosage: 450 MILLIGRAM, ONCE A DAY
     Route: 042
     Dates: start: 20180201
  36. OMEPRAZOLE [Suspect]
     Active Substance: OMEPRAZOLE
     Indication: Duodenal ulcer
     Dosage: 20 MILLIGRAM, ONE MONTH
     Route: 048
  37. OMEPRAZOLE [Suspect]
     Active Substance: OMEPRAZOLE
     Dosage: 20 MILLIGRAM, ONCE A DAY QD (MORNING) (OMEPRAZOLE CHEMO IBERICA 20 MG DAILY)
     Route: 048
  38. OMEPRAZOLE [Suspect]
     Active Substance: OMEPRAZOLE
     Dosage: 20 MILLIGRAM DAILY; PHARMACEUTICAL DOSE FORM: FORMULATION UNKNOWN
     Route: 065
  39. SENNOSIDES [Suspect]
     Active Substance: SENNOSIDES
     Indication: Product used for unknown indication
     Dosage: UNK
     Route: 065
  40. TACROLIMUS [Interacting]
     Active Substance: TACROLIMUS
     Indication: Prophylaxis against transplant rejection
     Dosage: 27 MILLIGRAM (Q5D)
     Route: 065
  41. TACROLIMUS [Interacting]
     Active Substance: TACROLIMUS
     Indication: Renal transplant
     Dosage: 30 MILLIGRAM, ONCE A DAY (30 MILLIGRAM, QD (15 MG, BID)
     Route: 048
     Dates: start: 20180127
  42. TACROLIMUS [Interacting]
     Active Substance: TACROLIMUS
     Dosage: 3 MILLIGRAM, ONCE A DAY, 1.5 MG, BID
     Route: 048
     Dates: start: 20100127, end: 20180130
  43. TACROLIMUS [Interacting]
     Active Substance: TACROLIMUS
     Dosage: 4 MILLIGRAM, ONCE A DAY (2 MILLIGRAM, BID)
     Route: 065
     Dates: start: 20180128
  44. TACROLIMUS [Interacting]
     Active Substance: TACROLIMUS
     Dosage: 12 MILLIGRAM
     Route: 065
  45. TACROLIMUS [Interacting]
     Active Substance: TACROLIMUS
     Dosage: 1.5 MILLIGRAM, ONCE A DAY
     Route: 048
     Dates: start: 20180127, end: 20180131
  46. TACROLIMUS [Interacting]
     Active Substance: TACROLIMUS
     Dosage: 2 MILLIGRAM, ONCE A DAY
     Route: 048
  47. TACROLIMUS [Interacting]
     Active Substance: TACROLIMUS
     Dosage: 15 MILLIGRAM, TWO TIMES A DAY
     Route: 048
  48. TACROLIMUS [Interacting]
     Active Substance: TACROLIMUS
     Dosage: 3 MILLIGRAM, ONCE A DAY
     Route: 048
     Dates: start: 20180131
  49. ALLOPURINOL [Concomitant]
     Active Substance: ALLOPURINOL
     Indication: Product used for unknown indication
     Dosage: 100 MILLIGRAM, ONCE A DAY(ALLOPURINOL 100MG OD PO O/A)
     Route: 048
  50. BETAHISTINE [Concomitant]
     Active Substance: BETAHISTINE
     Indication: Product used for unknown indication
     Dosage: 8 MILLIGRAM, ONE MONTH (8 MG, QMO )
     Route: 048
  51. BETAHISTINE [Concomitant]
     Active Substance: BETAHISTINE
     Dosage: 8 MILLIGRAM, ONCE A DAY(BETAHISTINE 8MG OM PO )
     Route: 048
  52. CALCIUM CARBONATE [Concomitant]
     Active Substance: CALCIUM CARBONATE
     Indication: Product used for unknown indication
     Dosage: UNK
     Route: 048
  53. CASSIA ACUTIFOLIA [Concomitant]
     Indication: Product used for unknown indication
     Dosage: 15 MILLIGRAM, ONCE A DAY(SENNA 15MG ON PO O/A ) NIGHT
     Route: 048
  54. CHOLECALCIFEROL [Concomitant]
     Active Substance: CHOLECALCIFEROL
     Indication: Product used for unknown indication
     Dosage: 20 NANOGRAM, ONCE A DAY (MORNING)
     Route: 048
  55. CHOLECALCIFEROL [Concomitant]
     Active Substance: CHOLECALCIFEROL
     Dosage: 20 NANOGRAM, ONE MONTH
     Route: 048
  56. DEXTROSE [Concomitant]
     Active Substance: DEXTROSE
     Indication: Product used for unknown indication
     Dosage: UNK (PHARMACEUTICAL DOSE FORM: FORMULATION UNKNOWN)
     Route: 065
     Dates: start: 20180130
  57. FUROSEMIDE [Concomitant]
     Active Substance: FUROSEMIDE
     Indication: Product used for unknown indication
     Dosage: 80 MILLIGRAM, ONCE A DAY, QD (MORNING)
     Route: 048
     Dates: start: 20180130
  58. FUROSEMIDE [Concomitant]
     Active Substance: FUROSEMIDE
     Dosage: 40 MILLIGRAM (40 MILLIGRAM, 12 PM)
     Route: 048
  59. FUROSEMIDE [Concomitant]
     Active Substance: FUROSEMIDE
     Dosage: 120 MILLIGRAM, ONCE A DAY (80MG MORNING, 40MG 12PM )
     Route: 048
  60. GLUCAGON [Concomitant]
     Active Substance: GLUCAGON
     Indication: Product used for unknown indication
     Dosage: UNK
     Route: 030
     Dates: start: 20180130
  61. GLICLAZIDE [Concomitant]
     Active Substance: GLICLAZIDE
     Indication: Product used for unknown indication
     Dosage: 40 MILLIGRAM, ONCE A DAY (MORNING)
     Route: 048
  62. GLICLAZIDE [Concomitant]
     Active Substance: GLICLAZIDE
     Dosage: 40 MILLIGRAM (40 MILLIGRAM, 1 MONTH)
     Route: 048
  63. NITROGLYCERIN [Concomitant]
     Active Substance: NITROGLYCERIN
     Indication: Product used for unknown indication
     Dosage: UNK
     Route: 065
  64. NITROGLYCERIN [Concomitant]
     Active Substance: NITROGLYCERIN
     Indication: Product used for unknown indication
     Dosage: GTN SPRAY
     Route: 065
  65. NITROGLYCERIN [Concomitant]
     Active Substance: NITROGLYCERIN
     Indication: Product used for unknown indication
  66. HYDROCORTISONE [Concomitant]
     Active Substance: HYDROCORTISONE
     Indication: Product used for unknown indication
     Dosage: 50 MILLIGRAM, 3 TIMES A DAY  (150 MILLIGRAM DAILY)
     Route: 042
  67. HYDROCORTISONE [Concomitant]
     Active Substance: HYDROCORTISONE
     Dosage: 150 MILLIGRAM DAILY; HYDROCORTISONE IV 50 MG THREE TIMES A DAY
     Route: 042
  68. PREDNISOLONE [Concomitant]
     Active Substance: PREDNISOLONE
     Indication: Product used for unknown indication
     Dosage: 10 MILLIGRAM (10 MG (DOSE INCREASED TO 10 MG FOR 5 DAYS)) (.3333 MILLIGRAM DAILY;)
     Route: 048
  69. PREDNISOLONE [Concomitant]
     Active Substance: PREDNISOLONE
     Dosage: 5 MILLIGRAM, ONE MONTH (5 MG, QMO (MORNING)
     Route: 048
     Dates: start: 20180127
  70. PREDNISOLONE [Concomitant]
     Active Substance: PREDNISOLONE
     Dosage: 5 MILLIGRAM, ONCE A DAY
     Route: 048
  71. PREDNISOLONE [Concomitant]
     Active Substance: PREDNISOLONE
     Dosage: 10 MILLIGRAM (INCREASE PREDNISOLONE TO 10 MG FOR 5 DAYS)
     Route: 065
     Dates: start: 20180127
  72. ALBUTEROL [Concomitant]
     Active Substance: ALBUTEROL
     Indication: Product used for unknown indication
     Dosage: UNK
     Route: 065
  73. SENNA [Concomitant]
     Active Substance: SENNA LEAF\SENNOSIDES\SENNOSIDES A AND B
     Indication: Product used for unknown indication
     Dosage: 15 MILLIGRAM, ONCE A DAY
     Route: 048
  74. SENNOSIDES A AND B [Concomitant]
     Active Substance: SENNOSIDES A AND B
     Indication: Product used for unknown indication
     Dosage: UNK
     Route: 065

REACTIONS (36)
  - Acute kidney injury [Fatal]
  - Cardiac failure congestive [Fatal]
  - Cough [Fatal]
  - Cardiomegaly [Fatal]
  - Drug level increased [Fatal]
  - Dyspnoea [Fatal]
  - Dysphagia [Fatal]
  - Haemoptysis [Fatal]
  - Hypoglycaemia [Fatal]
  - Immunosuppressant drug level increased [Fatal]
  - Inflammatory marker increased [Fatal]
  - Lung consolidation [Fatal]
  - Ascites [Fatal]
  - Lower respiratory tract infection [Fatal]
  - Myocardial ischaemia [Fatal]
  - Multimorbidity [Fatal]
  - Malaise [Fatal]
  - Toxicity to various agents [Fatal]
  - Oesophageal carcinoma [Fatal]
  - Oesophageal perforation [Fatal]
  - Pleural effusion [Fatal]
  - Pyrexia [Fatal]
  - Pneumonia [Fatal]
  - Productive cough [Fatal]
  - Renal impairment [Fatal]
  - Rales [Fatal]
  - Rash [Fatal]
  - Soft tissue mass [Fatal]
  - Sepsis [Fatal]
  - Swelling [Fatal]
  - Superinfection [Fatal]
  - Transplant failure [Fatal]
  - Drug interaction [Fatal]
  - Labelled drug-drug interaction medication error [Fatal]
  - Toxicity to various agents [Fatal]
  - Drug level increased [Fatal]

NARRATIVE: CASE EVENT DATE: 20180118
